FAERS Safety Report 9393430 (Version 1)
Quarter: 2013Q3

REPORT INFORMATION
  Report Type: Spontaneous
  Country: None (occurrence: None)
  Receive Date: 20130705
  Receipt Date: 20130705
  Transmission Date: 20140515
  Serious: Yes (Hospitalization)
  Sender: FDA-Public Use
  Company Number: GB-023355

PATIENT
  Age: 62 Year
  Sex: Male

DRUGS (9)
  1. CHLORAMBUCIL [Suspect]
     Indication: CHRONIC LYMPHOCYTIC LEUKAEMIA
     Route: 048
     Dates: start: 20090910
  2. RITUXIMAB [Suspect]
     Indication: CHRONIC LYMPHOCYTIC LEUKAEMIA
     Dosage: INTRAVENOUS (NOT OTHERWISE SPECIFIED)?
     Route: 042
  3. ALLOPURINOL [Concomitant]
  4. GABAPENTIN (GABAPENTIN) [Concomitant]
  5. TRAMADOL (TRAMADOL) [Concomitant]
  6. PARACETAMOL (PARACETAMOL) [Concomitant]
  7. PERINDOPRIL (PERINDOPRIL) [Concomitant]
  8. ACITRETIN (ACITRETIN) [Concomitant]
  9. FRAGMIN (DALTEPARIN) [Concomitant]

REACTIONS (3)
  - Back pain [None]
  - Micturition disorder [None]
  - Infection [None]
